FAERS Safety Report 9153112 (Version 1)
Quarter: 2013Q1

REPORT INFORMATION
  Report Type: Spontaneous
  Country: US (occurrence: US)
  Receive Date: 20130311
  Receipt Date: 20130311
  Transmission Date: 20140127
  Serious: No
  Sender: FDA-Public Use
  Company Number: US-009507513-1303USA003630

PATIENT
  Age: 26 Year
  Sex: Female

DRUGS (1)
  1. NUVARING [Suspect]
     Indication: CONTRACEPTION
     Dosage: 1 RING FOR 3 WEEKS
     Route: 067
     Dates: start: 20130303

REACTIONS (1)
  - Inappropriate schedule of drug administration [Unknown]
